FAERS Safety Report 7669197-4 (Version None)
Quarter: 2011Q3

REPORT INFORMATION
  Report Type: 
  Country: None (occurrence: None)
  Receive Date: 20110808
  Receipt Date: 20110728
  Transmission Date: 20111222
  Serious: Yes (Hospitalization)
  Sender: FDA-Public Use
  Company Number: PHHY2011CH67905

PATIENT
  Age: 39 Year
  Sex: Male

DRUGS (8)
  1. VOLTAREN [Suspect]
     Indication: ANALGESIC THERAPY
     Dosage: 3 TIMES DAILY
     Dates: start: 20110518, end: 20110520
  2. AUGMENTIN '125' [Suspect]
     Indication: C-REACTIVE PROTEIN INCREASED
     Dosage: 2 G, DAILY
     Route: 048
     Dates: start: 20110518, end: 20110525
  3. NOVALGIN [Concomitant]
     Dosage: UNK UKN, UNK
     Dates: start: 20110520
  4. METAMIZOLE [Suspect]
     Dosage: UNK UKN, UNK
     Route: 048
     Dates: start: 20110520
  5. IBUPROFEN [Suspect]
     Indication: PAIN
     Dosage: 1800 MG, UNK
     Route: 048
     Dates: start: 20110516, end: 20110517
  6. ACETAMINOPHEN [Concomitant]
     Dosage: 1 G, QD
     Dates: start: 20110518
  7. CETIRIZINE HCL [Concomitant]
     Dosage: UNK UKN, UNK
     Route: 048
     Dates: start: 20110517, end: 20110501
  8. TRAMADOL HCL [Concomitant]
     Dosage: UNK UKN, UNK
     Route: 048
     Dates: start: 20110520, end: 20110501

REACTIONS (16)
  - ALBUMIN URINE PRESENT [None]
  - ERYTHEMA [None]
  - OEDEMA PERIPHERAL [None]
  - PROTEIN URINE PRESENT [None]
  - ARTHRALGIA [None]
  - RASH MACULO-PAPULAR [None]
  - RENAL FAILURE ACUTE [None]
  - URINE PROTEIN/CREATININE RATIO INCREASED [None]
  - TUBULOINTERSTITIAL NEPHRITIS [None]
  - ABNORMAL FAECES [None]
  - LYMPHADENOPATHY [None]
  - NEPHROTIC SYNDROME [None]
  - BLOOD CREATININE INCREASED [None]
  - OEDEMA [None]
  - WEIGHT DECREASED [None]
  - DYSPNOEA [None]
